FAERS Safety Report 16969584 (Version 1)
Quarter: 2019Q4

REPORT INFORMATION
  Report Type: Spontaneous
  Country: IT (occurrence: IT)
  Receive Date: 20191029
  Receipt Date: 20191029
  Transmission Date: 20200122
  Serious: Yes (Hospitalization)
  Sender: FDA-Public Use
  Company Number: IT-PFIZER INC-2019466187

PATIENT
  Age: 90 Year
  Sex: Male

DRUGS (10)
  1. BISOPROLOL FUMARATE. [Suspect]
     Active Substance: BISOPROLOL FUMARATE
     Dosage: 3.75 MG, 1X/DAY
     Route: 048
     Dates: start: 20180301, end: 20190721
  2. ALPRAZOLAM. [Concomitant]
     Active Substance: ALPRAZOLAM
     Dosage: UNK (10 DROP)
     Route: 048
  3. XARELTO [Concomitant]
     Active Substance: RIVAROXABAN
     Dosage: 15 MG, UNK
     Route: 048
  4. RAMIPRIL. [Suspect]
     Active Substance: RAMIPRIL
     Dosage: 7.5 MG, 1X/DAY
     Route: 065
     Dates: start: 20180301
  5. PANTOPRAZOLE [Concomitant]
     Active Substance: PANTOPRAZOLE
     Dosage: 20 MG, UNK
     Route: 048
  6. RAMIPRIL. [Suspect]
     Active Substance: RAMIPRIL
     Dosage: UNK
     Route: 065
  7. LASIX [Suspect]
     Active Substance: FUROSEMIDE
     Dosage: 50 MG, 1X/DAY
     Route: 048
     Dates: start: 20140401
  8. LUVION (POTASSIUM CANRENOATE) [Suspect]
     Active Substance: CANRENOATE POTASSIUM
     Dosage: 50 MG, 1X/DAY
     Route: 048
     Dates: start: 20181001, end: 20190721
  9. LASIX [Suspect]
     Active Substance: FUROSEMIDE
     Dosage: UNK
     Route: 048
  10. MINITRAN [Concomitant]
     Active Substance: NITROGLYCERIN
     Dosage: 1 DF, UNK
     Route: 065

REACTIONS (2)
  - Dehydration [Recovering/Resolving]
  - Hypotension [Recovering/Resolving]

NARRATIVE: CASE EVENT DATE: 20190721
